FAERS Safety Report 4890103-X (Version None)
Quarter: 2005Q4

REPORT INFORMATION
  Report Type: 
  Country: None (occurrence: None)
  Receive Date: 20051215
  Receipt Date: 20041227
  Transmission Date: 20060501
  Serious: Yes (Other)
  Sender: FDA-Public Use
  Company Number: 2004095836

PATIENT
  Age: 85 Year
  Sex: Female
  Weight: 86.1834 kg

DRUGS (7)
  1. BEXTRA [Suspect]
     Indication: BACK PAIN
     Dosage: 10 MG (10 MG, 1 IN 1 D), ORAL
     Route: 048
     Dates: start: 20041110, end: 20041101
  2. BEXTRA [Suspect]
     Indication: OSTEOARTHRITIS
     Dosage: 10 MG (10 MG, 1 IN 1 D), ORAL
     Route: 048
     Dates: start: 20041110, end: 20041101
  3. PAROXETINE HCL [Concomitant]
  4. PROPACET 100 [Concomitant]
  5. METHOCARBAMOL [Concomitant]
  6. PREDNISONE [Concomitant]
  7. METOPROLOL (METOPROLOL) [Concomitant]

REACTIONS (2)
  - DRUG INEFFECTIVE [None]
  - DYSPNOEA [None]
